FAERS Safety Report 19094572 (Version 1)
Quarter: 2021Q2

REPORT INFORMATION
  Report Type: Spontaneous
  Country: NL (occurrence: NL)
  Receive Date: 20210406
  Receipt Date: 20210406
  Transmission Date: 20210717
  Serious: Yes (Other)
  Sender: FDA-Public Use
  Company Number: NL-AUROBINDO-AUR-APL-2021-014044

PATIENT
  Sex: Male
  Weight: 96 kg

DRUGS (2)
  1. GLATIRAMER [Concomitant]
     Active Substance: GLATIRAMER
     Indication: PRODUCT USED FOR UNKNOWN INDICATION
     Dosage: 40 MILLIGRAM PER MILLILETER
     Route: 065
     Dates: end: 20190801
  2. LORATADINE 10 MG TABLET [Suspect]
     Active Substance: LORATADINE
     Indication: URTICARIA
     Dosage: 1 DOSAGE FORM, ONCE A DAY
     Route: 065
     Dates: start: 2016, end: 20190801

REACTIONS (1)
  - Thrombocytopenia [Recovered/Resolved]
